FAERS Safety Report 13447121 (Version 5)
Quarter: 2017Q2

REPORT INFORMATION
  Report Type: Spontaneous
  Country: JP (occurrence: JP)
  Receive Date: 20170417
  Receipt Date: 20170523
  Transmission Date: 20170830
  Serious: Yes (Hospitalization, Other)
  Sender: FDA-Public Use
  Company Number: JP-REGENERON PHARMACEUTICALS, INC.-2017-14380

PATIENT

DRUGS (4)
  1. EYLEA [Suspect]
     Active Substance: AFLIBERCEPT
     Dosage: 2 MG, Q1MON
     Route: 031
     Dates: start: 20161025, end: 20161025
  2. EYLEA [Suspect]
     Active Substance: AFLIBERCEPT
     Indication: NEOVASCULAR AGE-RELATED MACULAR DEGENERATION
     Dosage: 2 MG, Q1MON
     Route: 031
     Dates: start: 20160927, end: 20160927
  3. CRAVIT [Concomitant]
     Active Substance: LEVOFLOXACIN
     Indication: PRODUCT USED FOR UNKNOWN INDICATION
     Dosage: UNK
     Route: 047
  4. CRAVIT [Concomitant]
     Active Substance: LEVOFLOXACIN
     Dosage: UNK, QID
     Route: 047
     Dates: start: 20160924, end: 20161028

REACTIONS (1)
  - Angina unstable [Recovering/Resolving]

NARRATIVE: CASE EVENT DATE: 201610
